FAERS Safety Report 8207539-1 (Version None)
Quarter: 2012Q1

REPORT INFORMATION
  Report Type: 
  Country: None (occurrence: None)
  Receive Date: 20120313
  Receipt Date: 20120313
  Transmission Date: 20120608
  Serious: No
  Sender: FDA-Public Use
  Company Number: None

PATIENT
  Sex: Male
  Weight: 113.3993 kg

DRUGS (1)
  1. RISPERIDONE [Suspect]
     Indication: SCHIZOAFFECTIVE DISORDER
     Dosage: 4MG ONCE DAILY BY MOUTH : 2MG ONCE DAILY BY MOUTH
     Route: 048
     Dates: start: 20120127

REACTIONS (1)
  - HYPERPROLACTINAEMIA [None]
